FAERS Safety Report 22699891 (Version 4)
Quarter: 2023Q4

REPORT INFORMATION
  Report Type: Report from Study
  Country: IT (occurrence: IT)
  Receive Date: 20230713
  Receipt Date: 20231120
  Transmission Date: 20240110
  Serious: Yes (Hospitalization)
  Sender: FDA-Public Use
  Company Number: IT-002147023-NVSC2023IT154505

PATIENT
  Age: 86 Year
  Sex: Female

DRUGS (4)
  1. BEOVU [Suspect]
     Active Substance: BROLUCIZUMAB-DBLL
     Indication: Age-related macular degeneration
     Dosage: 6 MG (1 INJECTION 6 MG EACH 12 W)
     Route: 031
     Dates: start: 20220803, end: 20230607
  2. BEOVU [Suspect]
     Active Substance: BROLUCIZUMAB-DBLL
     Dosage: UNK
     Route: 031
     Dates: start: 20230731
  3. NEBIVOLOL [Concomitant]
     Active Substance: NEBIVOLOL
     Indication: Hypertension
     Dosage: 5 MG DAILY
     Route: 048
     Dates: start: 2000
  4. ATORVASTATIN [Concomitant]
     Active Substance: ATORVASTATIN
     Indication: Hypercholesterolaemia
     Dosage: 20 MG DAILY
     Route: 048
     Dates: start: 2000

REACTIONS (2)
  - Cerebellar ischaemia [Recovered/Resolved]
  - Asthenia [Recovered/Resolved]

NARRATIVE: CASE EVENT DATE: 20230610
